FAERS Safety Report 19375029 (Version 4)
Quarter: 2021Q3

REPORT INFORMATION
  Report Type: Spontaneous
  Country: AR (occurrence: AR)
  Receive Date: 20210604
  Receipt Date: 20210913
  Transmission Date: 20211014
  Serious: Yes (Other)
  Sender: FDA-Public Use
  Company Number: AR-MYLANLABS-2021M1017763

PATIENT
  Age: 52 Year
  Sex: Male

DRUGS (4)
  1. LAPENAX [Suspect]
     Active Substance: CLOZAPINE
     Dosage: 300 MILLIGRAM, QD
  2. LAPENAX [Suspect]
     Active Substance: CLOZAPINE
     Indication: SCHIZOPHRENIA
     Dosage: UNK
     Dates: start: 2011
  3. LAPENAX [Suspect]
     Active Substance: CLOZAPINE
     Dosage: UNK
     Dates: start: 201907
  4. LAPENAX [Suspect]
     Active Substance: CLOZAPINE
     Dosage: 500 MILLIGRAM, QD

REACTIONS (3)
  - Leukopenia [Not Recovered/Not Resolved]
  - Lymphocyte count decreased [Recovering/Resolving]
  - Neutrophil count increased [Recovered/Resolved]

NARRATIVE: CASE EVENT DATE: 20210319
